FAERS Safety Report 9778684 (Version 1)
Quarter: 2013Q4

REPORT INFORMATION
  Report Type: Spontaneous
  Country: US (occurrence: US)
  Receive Date: 20131223
  Receipt Date: 20131223
  Transmission Date: 20140711
  Serious: Yes (Other)
  Sender: FDA-Public Use
  Company Number: US-GE HEALTHCARE MEDICAL DIAGNOSTICS-OSCN-PR-1311S-0121

PATIENT
  Sex: Male
  Weight: 74 kg

DRUGS (21)
  1. OMNISCAN [Suspect]
     Indication: HYPERTENSION
     Route: 042
     Dates: start: 20020812, end: 20020812
  2. OMNISCAN [Suspect]
     Indication: CONVULSION
     Route: 042
     Dates: start: 20050606, end: 20050606
  3. OMNISCAN [Suspect]
     Indication: PANCREATIC MASS
  4. MAGNEVIST [Suspect]
     Indication: MASS
     Route: 042
     Dates: start: 20030507, end: 20030507
  5. DIVALPROEX [Concomitant]
  6. LISINOPRIL [Concomitant]
  7. EPOGEN [Concomitant]
  8. PHENYTOIN [Concomitant]
  9. HYDRALAZINE [Concomitant]
  10. WARFARIN SODIUM [Concomitant]
  11. MINOXIDIL [Concomitant]
  12. PROCARDIA XL [Concomitant]
  13. NIFEDICAL XL [Concomitant]
  14. CARVEDILOL [Concomitant]
  15. SENSIPAR [Concomitant]
  16. HYOSCYAMINE [Concomitant]
  17. SUCRALFATE [Concomitant]
  18. LOPRESSOR [Concomitant]
  19. RENAGEL [Concomitant]
  20. LOSARTAN [Concomitant]
  21. VALTREX [Concomitant]

REACTIONS (1)
  - Nephrogenic systemic fibrosis [Not Recovered/Not Resolved]
